FAERS Safety Report 18001003 (Version 2)
Quarter: 2021Q1

REPORT INFORMATION
  Report Type: Spontaneous
  Country: CA (occurrence: CA)
  Receive Date: 20200709
  Receipt Date: 20210222
  Transmission Date: 20210419
  Serious: Yes (Life-Threatening, Other)
  Sender: FDA-Public Use
  Company Number: CA-TEVA-2020-CA-1797239

PATIENT
  Age: 3 Year
  Sex: Male
  Weight: 12 kg

DRUGS (21)
  1. CISPLATIN INJECTION [Suspect]
     Active Substance: CISPLATIN
     Indication: NEUROBLASTOMA
     Route: 042
  2. ACETAMINOPHEN. [Concomitant]
     Active Substance: ACETAMINOPHEN
  3. LUGOLS SOL [Concomitant]
  4. ONDANSETRON [Concomitant]
     Active Substance: ONDANSETRON
  5. PHOSPHATES SOLUTION [Concomitant]
  6. CHOLECALCIFEROL [Concomitant]
     Active Substance: CHOLECALCIFEROL
  7. DIMENHYDRINATE. [Concomitant]
     Active Substance: DIMENHYDRINATE
  8. MAGNESIUM [Concomitant]
     Active Substance: MAGNESIUM
  9. DEXAMETHASONE. [Concomitant]
     Active Substance: DEXAMETHASONE
  10. DIPHENHYDRAMINE. [Concomitant]
     Active Substance: DIPHENHYDRAMINE
  11. MELATONIN [Concomitant]
     Active Substance: MELATONIN
  12. METOCLOPRAMIDE. [Concomitant]
     Active Substance: METOCLOPRAMIDE
  13. ETOPOSIDE. [Suspect]
     Active Substance: ETOPOSIDE
     Indication: NEUROBLASTOMA
     Route: 042
  14. MULTIVITAMIN + MINERAL [Concomitant]
     Active Substance: MINERALS\VITAMINS
  15. CALCIUM [Concomitant]
     Active Substance: CALCIUM
  16. FILGRASTIM [Concomitant]
     Active Substance: FILGRASTIM
  17. MORPHINE [Concomitant]
     Active Substance: MORPHINE
  18. POTASSIUM [Concomitant]
     Active Substance: POTASSIUM
  19. SULFAMETHOXAZOLE AND TRIMETHOPRIM [Concomitant]
     Active Substance: SULFAMETHOXAZOLE\TRIMETHOPRIM
  20. EMEND [Concomitant]
     Active Substance: APREPITANT
  21. HEPARIN SODIUM. [Concomitant]
     Active Substance: HEPARIN SODIUM

REACTIONS (8)
  - Aplastic anaemia [Unknown]
  - Pancytopenia [Unknown]
  - Blood phosphorus abnormal [Unknown]
  - Diarrhoea [Unknown]
  - Blood magnesium abnormal [Unknown]
  - Dehydration [Unknown]
  - Neutropenia [Unknown]
  - Hypokalaemia [Unknown]
